FAERS Safety Report 14928045 (Version 1)
Quarter: 2018Q2

REPORT INFORMATION
  Report Type: Spontaneous
  Country: CN (occurrence: CN)
  Receive Date: 20180523
  Receipt Date: 20180523
  Transmission Date: 20180711
  Serious: Yes (Death, Hospitalization)
  Sender: FDA-Public Use
  Company Number: CN-BAYER-2018-098374

PATIENT
  Age: 49 Year
  Sex: Male

DRUGS (2)
  1. TACE [Concomitant]
     Active Substance: CHLOROTRIANISENE
     Indication: HEPATIC CANCER
     Dosage: UNK
     Dates: start: 201308, end: 201703
  2. NEXAVAR [Suspect]
     Active Substance: SORAFENIB
     Indication: HEPATIC CANCER
     Dosage: 400 MG, BID
     Route: 048
     Dates: start: 201308, end: 201703

REACTIONS (1)
  - Hepatic cancer [Fatal]

NARRATIVE: CASE EVENT DATE: 201703
